FAERS Safety Report 4839118-8 (Version None)
Quarter: 2005Q4

REPORT INFORMATION
  Report Type: 
  Country: None (occurrence: None)
  Receive Date: 20051129
  Receipt Date: 20051124
  Transmission Date: 20060501
  Serious: Yes (Other)
  Sender: FDA-Public Use
  Company Number: GB-GLAXOSMITHKLINE-B0401571A

PATIENT
  Age: 37 Year
  Sex: Male

DRUGS (1)
  1. SEROXAT [Suspect]
     Indication: STRESS
     Dosage: 5ML PER DAY
     Route: 048
     Dates: start: 20000101

REACTIONS (6)
  - HEADACHE [None]
  - MUSCLE SPASMS [None]
  - NAUSEA [None]
  - PARAESTHESIA [None]
  - PERICARDITIS [None]
  - TREMOR [None]
